FAERS Safety Report 6628509-0 (Version None)
Quarter: 2010Q1

REPORT INFORMATION
  Report Type: 
  Country: None (occurrence: None)
  Receive Date: 20100225
  Receipt Date: 20090917
  Transmission Date: 20100710
  Serious: Yes (Other)
  Sender: FDA-Public Use
  Company Number: 657271

PATIENT
  Sex: Female

DRUGS (2)
  1. ACCUTANE [Suspect]
     Indication: DRUG USE FOR UNKNOWN INDICATION
     Dates: start: 19990901, end: 20020901
  2. AMNESTEEM [Suspect]
     Indication: ACNE
     Dates: start: 20040101, end: 20040701

REACTIONS (1)
  - INFLAMMATORY BOWEL DISEASE [None]
